FAERS Safety Report 12950415 (Version 2)
Quarter: 2017Q1

REPORT INFORMATION
  Report Type: Spontaneous
  Country: US (occurrence: US)
  Receive Date: 20161117
  Receipt Date: 20170127
  Transmission Date: 20170428
  Serious: Yes (Hospitalization, Other)
  Sender: FDA-Public Use
  Company Number: US-SMITH AND NEPHEW, INC-2016SMT00989

PATIENT
  Age: 70 Year
  Sex: Male
  Weight: 117.91 kg

DRUGS (14)
  1. REGRANEX [Suspect]
     Active Substance: BECAPLERMIN
     Indication: HYPERKERATOSIS
     Dosage: UNK UNK, EVERY 48 HOURS
     Route: 061
     Dates: start: 201609, end: 20161022
  2. VITAMIN C [Concomitant]
     Active Substance: ASCORBIC ACID
     Dosage: 1000 MG, 1X/DAY
     Route: 048
  3. VITAMIN B3 [Concomitant]
     Active Substance: NIACIN
  4. PANTOPRAZOLE [Concomitant]
     Active Substance: PANTOPRAZOLE SODIUM
     Dosage: UNK, 2X/DAY
  5. CHOLECALCIFEROL (VITAMIN D3) [Concomitant]
     Dosage: 1 CAPSULES, 1X/DAY
     Route: 048
  6. VITAMIN B6 [Concomitant]
     Active Substance: PYRIDOXINE HYDROCHLORIDE
  7. ACIDOPHILUS-PECTIN [Concomitant]
     Dosage: 1 CAPSULES, 3X/DAY
     Route: 048
  8. COUMADIN [Concomitant]
     Active Substance: WARFARIN SODIUM
  9. LASIX [Concomitant]
     Active Substance: FUROSEMIDE
     Dosage: 40 MG, 1X/DAY
     Route: 048
  10. ASPIRIN. [Concomitant]
     Active Substance: ASPIRIN
     Dosage: 81 MG, 1X/DAY
     Route: 048
  11. VITAMIN B12 [Concomitant]
     Active Substance: CYANOCOBALAMIN
     Dosage: 1 TABLETS, 1X/DAY
     Route: 048
  12. COENZYME Q10 (COQ-10) [Concomitant]
     Dosage: 100 MG, 1X/DAY
     Route: 048
  13. MULTIVITAMIN WITHOUT MINERALS [Concomitant]
  14. LEVOTHYROXINE. [Concomitant]
     Active Substance: LEVOTHYROXINE
     Dosage: 100 ?G, 1X/DAY
     Route: 048

REACTIONS (5)
  - Inappropriate schedule of drug administration [Recovered/Resolved]
  - Pedal pulse decreased [Unknown]
  - Calcanectomy [Recovered/Resolved with Sequelae]
  - Osteomyelitis [Unknown]
  - Sepsis [Unknown]

NARRATIVE: CASE EVENT DATE: 2016
